FAERS Safety Report 25527732 (Version 1)
Quarter: 2025Q3

REPORT INFORMATION
  Report Type: Other
  Country: US (occurrence: US)
  Receive Date: 20250708
  Receipt Date: 20250708
  Transmission Date: 20251020
  Serious: Yes (Other)
  Sender: AMNEAL
  Company Number: US-AMNEAL PHARMACEUTICALS-2025-AMRX-01535

PATIENT

DRUGS (2)
  1. METHYLPREDNISOLONE ACETATE [Suspect]
     Active Substance: METHYLPREDNISOLONE ACETATE
     Indication: Product used for unknown indication
     Route: 065
  2. BUPIVACAINE [Suspect]
     Active Substance: BUPIVACAINE
     Indication: Product used for unknown indication
     Route: 065

REACTIONS (13)
  - Seizure [Unknown]
  - Fatigue [Unknown]
  - Tooth fracture [Unknown]
  - Impaired work ability [Unknown]
  - Disorientation [Unknown]
  - Drug intolerance [Unknown]
  - Malaise [Unknown]
  - Mood swings [Unknown]
  - Personality change [Unknown]
  - Hyperhidrosis [Unknown]
  - Vertigo [Unknown]
  - Product quality issue [Unknown]
  - Product administration error [Unknown]
